FAERS Safety Report 11134415 (Version 1)
Quarter: 2015Q2

REPORT INFORMATION
  Report Type: Report from Study
  Country: FR (occurrence: FR)
  Receive Date: 20150525
  Receipt Date: 20150525
  Transmission Date: 20150821
  Serious: Yes (Hospitalization, Other)
  Sender: FDA-Public Use
  Company Number: FR-ROCHE-1164248

PATIENT
  Age: 71 Year
  Sex: Female

DRUGS (23)
  1. COVERSYL [Concomitant]
     Active Substance: PERINDOPRIL
  2. PLAVIX [Concomitant]
     Active Substance: CLOPIDOGREL BISULFATE
  3. UVEDOSE [Concomitant]
     Active Substance: CHOLECALCIFEROL
  4. RITUXIMAB [Suspect]
     Active Substance: RITUXIMAB
     Route: 042
     Dates: start: 20110607
  5. AZATHIOPRINE. [Concomitant]
     Active Substance: AZATHIOPRINE
     Route: 065
  6. KARDEGIC [Concomitant]
     Active Substance: ASPIRIN LYSINE
  7. COUMADINE [Concomitant]
     Active Substance: WARFARIN SODIUM
  8. RITUXIMAB [Suspect]
     Active Substance: RITUXIMAB
     Route: 042
     Dates: start: 20090609
  9. RITUXIMAB [Suspect]
     Active Substance: RITUXIMAB
     Route: 042
     Dates: start: 20091209
  10. CORTANCYL [Concomitant]
     Active Substance: PREDNISONE
     Route: 065
  11. ELISOR [Concomitant]
     Active Substance: PRAVASTATIN SODIUM
  12. RITUXIMAB [Suspect]
     Active Substance: RITUXIMAB
     Route: 042
     Dates: start: 20100608
  13. CORTANCYL [Concomitant]
     Active Substance: PREDNISONE
     Route: 065
  14. CARDENSIEL [Concomitant]
     Active Substance: BISOPROLOL FUMARATE
  15. RITUXIMAB [Suspect]
     Active Substance: RITUXIMAB
     Route: 042
     Dates: start: 20101209
  16. LOVENOX [Concomitant]
     Active Substance: ENOXAPARIN SODIUM
  17. ACLASTA [Concomitant]
     Active Substance: ZOLEDRONIC ACID
  18. CACIT D3 [Concomitant]
     Active Substance: CALCIUM\CHOLECALCIFEROL
  19. DOLIPRANE [Concomitant]
     Active Substance: ACETAMINOPHEN
  20. RITUXIMAB [Suspect]
     Active Substance: RITUXIMAB
     Indication: RHEUMATOID ARTHRITIS
     Route: 042
     Dates: start: 20081114
  21. RITUXIMAB [Suspect]
     Active Substance: RITUXIMAB
     Route: 042
     Dates: start: 20081218
  22. RITUXIMAB [Suspect]
     Active Substance: RITUXIMAB
     Route: 042
     Dates: start: 20120117, end: 20120117
  23. ATACAND [Concomitant]
     Active Substance: CANDESARTAN CILEXETIL

REACTIONS (15)
  - Skin lesion [Not Recovered/Not Resolved]
  - Tachycardia [Not Recovered/Not Resolved]
  - Back pain [Not Recovered/Not Resolved]
  - White matter lesion [Not Recovered/Not Resolved]
  - Pyrexia [Recovered/Resolved with Sequelae]
  - Sciatica [Not Recovered/Not Resolved]
  - Pyelonephritis acute [Unknown]
  - Bronchitis [Unknown]
  - Dizziness [Not Recovered/Not Resolved]
  - Pneumonia [Recovered/Resolved with Sequelae]
  - Arthralgia [Not Recovered/Not Resolved]
  - Asthenia [Not Recovered/Not Resolved]
  - Bronchopneumonia [Recovered/Resolved]
  - Hyperkalaemia [Not Recovered/Not Resolved]
  - Cystitis escherichia [Unknown]

NARRATIVE: CASE EVENT DATE: 20081119
